FAERS Safety Report 8453867-4 (Version None)
Quarter: 2012Q2

REPORT INFORMATION
  Report Type: 
  Country: None (occurrence: None)
  Receive Date: 20120620
  Receipt Date: 20110831
  Transmission Date: 20120825
  Serious: No
  Sender: FDA-Public Use
  Company Number: US-FOUGERA-2011FO000150

PATIENT
  Age: 35 None
  Sex: Female

DRUGS (1)
  1. AMCINONIDE [Suspect]
     Indication: ARTHROPOD BITE
     Route: 061
     Dates: start: 20110826, end: 20110831

REACTIONS (1)
  - DRUG INEFFECTIVE [None]
